FAERS Safety Report 26147487 (Version 1)
Quarter: 2025Q4

REPORT INFORMATION
  Report Type: Spontaneous
  Country: US (occurrence: US)
  Receive Date: 20251211
  Receipt Date: 20251211
  Transmission Date: 20260118
  Serious: No
  Sender: ABBVIE
  Company Number: US-ABBVIE-6582844

PATIENT

DRUGS (1)
  1. VYALEV [Suspect]
     Active Substance: FOSCARBIDOPA\FOSLEVODOPA
     Indication: Parkinson^s disease
     Dosage: .42 MILLIGRAM/MILLILITERS
     Route: 058

REACTIONS (3)
  - Infusion site erythema [Recovered/Resolved]
  - Infusion site bruising [Recovered/Resolved]
  - Infusion site infection [Recovered/Resolved]

NARRATIVE: CASE EVENT DATE: 20250930
